FAERS Safety Report 7578845-9 (Version None)
Quarter: 2011Q2

REPORT INFORMATION
  Report Type: 
  Country: None (occurrence: None)
  Receive Date: 20110628
  Receipt Date: 20110622
  Transmission Date: 20111010
  Serious: Yes (Other)
  Sender: FDA-Public Use
  Company Number: DE-PFIZER INC-2011087007

PATIENT
  Age: 75 Year
  Sex: Female

DRUGS (1)
  1. FESOTERODINE [Suspect]
     Indication: BLADDER DISORDER
     Dosage: UNK
     Dates: start: 20070101

REACTIONS (1)
  - MYASTHENIA GRAVIS [None]
